FAERS Safety Report 24704862 (Version 1)
Quarter: 2024Q4

REPORT INFORMATION
  Report Type: Spontaneous
  Country: FR (occurrence: FR)
  Receive Date: 20241206
  Receipt Date: 20241206
  Transmission Date: 20250115
  Serious: Yes (Other)
  Sender: AUROBINDO
  Company Number: FR-AFSSAPS-DJ2024001208

PATIENT
  Age: 39 Year
  Sex: Female

DRUGS (2)
  1. ESCITALOPRAM [Suspect]
     Active Substance: ESCITALOPRAM OXALATE
     Indication: Depression
     Dosage: 5 MILLIGRAM, ONCE A DAY (5MG/D)
     Route: 048
     Dates: start: 20240712, end: 20240826
  2. AMITRIPTYLINE HYDROCHLORIDE [Suspect]
     Active Substance: AMITRIPTYLINE HYDROCHLORIDE
     Indication: Anxiety
     Dosage: 5 DOSAGE FORM
     Route: 048
     Dates: start: 20240712, end: 20240826

REACTIONS (8)
  - Condition aggravated [Unknown]
  - Vision blurred [Unknown]
  - Hypotension [Unknown]
  - Paraesthesia [Unknown]
  - Headache [Unknown]
  - Dizziness [Unknown]
  - Confusional state [Unknown]
  - Dry mouth [Unknown]

NARRATIVE: CASE EVENT DATE: 20240826
